FAERS Safety Report 6656275-1 (Version None)
Quarter: 2010Q1

REPORT INFORMATION
  Report Type: 
  Country: None (occurrence: None)
  Receive Date: 20100326
  Receipt Date: 20100326
  Transmission Date: 20100710
  Serious: Yes (Life-Threatening)
  Sender: FDA-Public Use
  Company Number: None

PATIENT
  Age: 41 Year
  Sex: Female
  Weight: 58.0604 kg

DRUGS (1)
  1. HUMIRA [Suspect]
     Indication: CROHN'S DISEASE
     Dosage: 40MG EVERY OTHER WEEK SQ
     Route: 058
     Dates: start: 20071015, end: 20100315

REACTIONS (4)
  - BACK PAIN [None]
  - NEOPLASM MALIGNANT [None]
  - NON-SMALL CELL LUNG CANCER [None]
  - PLEURAL NEOPLASM [None]
